FAERS Safety Report 9295732 (Version 1)
Quarter: 2013Q2

REPORT INFORMATION
  Report Type: Spontaneous
  Country: US (occurrence: None)
  Receive Date: 20130516
  Receipt Date: 20130516
  Transmission Date: 20140414
  Serious: Yes (Hospitalization)
  Sender: FDA-Public Use
  Company Number: None

PATIENT
  Age: 76 Year
  Sex: Male
  Weight: 63.2 kg

DRUGS (2)
  1. DOCETAXEL (TAXOTERE) [Suspect]
  2. CAMPTOSAR [Suspect]

REACTIONS (14)
  - Vomiting [None]
  - Diarrhoea [None]
  - Pyrexia [None]
  - Neutropenic sepsis [None]
  - Septic shock [None]
  - Leukopenia [None]
  - Tachycardia [None]
  - Acidosis [None]
  - Electrolyte imbalance [None]
  - Multi-organ failure [None]
  - Respiratory failure [None]
  - Coagulopathy [None]
  - Continuous haemodiafiltration [None]
  - Neurological decompensation [None]
